FAERS Safety Report 18809111 (Version 1)
Quarter: 2021Q1

REPORT INFORMATION
  Report Type: Other
  Country: CA (occurrence: CA)
  Receive Date: 20210129
  Receipt Date: 20210129
  Transmission Date: 20210419
  Serious: Yes (Death, Other)
  Sender: FDA-Public Use
  Company Number: CA-APOTEX-2021AP001562

PATIENT
  Age: 81 Year
  Sex: Female

DRUGS (9)
  1. RISEDRONATE [Suspect]
     Active Substance: RISEDRONATE SODIUM
     Indication: PRODUCT USED FOR UNKNOWN INDICATION
     Dosage: UNK
     Route: 065
  2. AMOXILLIN [AMOXICILLIN SODIUM] [Suspect]
     Active Substance: AMOXICILLIN SODIUM
     Indication: PRODUCT USED FOR UNKNOWN INDICATION
     Dosage: UNK
     Route: 065
  3. CODEINE [Suspect]
     Active Substance: CODEINE
     Indication: PRODUCT USED FOR UNKNOWN INDICATION
     Dosage: UNK
     Route: 065
  4. DILAUDID [Concomitant]
     Active Substance: HYDROMORPHONE HYDROCHLORIDE
     Indication: PRODUCT USED FOR UNKNOWN INDICATION
     Dosage: 1 MILLIGRAM
     Route: 065
  5. ACLASTA [Suspect]
     Active Substance: ZOLEDRONIC ACID
     Indication: OSTEOPOROSIS
     Dosage: UNK
     Route: 041
  6. ESOMEPRAZOLE SODIUM. [Concomitant]
     Active Substance: ESOMEPRAZOLE SODIUM
     Indication: PRODUCT USED FOR UNKNOWN INDICATION
     Dosage: 40 MILLIGRAM, QD
     Route: 065
  7. NITROGLYCERIN. [Concomitant]
     Active Substance: NITROGLYCERIN
     Indication: CHEST PAIN
     Dosage: 1 DOSAGE FORM
     Route: 048
  8. PROPRANOLOL HYDROCHLORIDE. [Concomitant]
     Active Substance: PROPRANOLOL HYDROCHLORIDE
     Indication: PRODUCT USED FOR UNKNOWN INDICATION
     Dosage: 80 MILLIGRAM, QD
     Route: 065
  9. ZITHROMAX [Suspect]
     Active Substance: AZITHROMYCIN DIHYDRATE
     Indication: PRODUCT USED FOR UNKNOWN INDICATION
     Dosage: UNK
     Route: 065

REACTIONS (22)
  - Acute kidney injury [Fatal]
  - Angina pectoris [Fatal]
  - Drug hypersensitivity [Fatal]
  - Hypercalcaemia [Fatal]
  - Hepatic steatosis [Fatal]
  - Toxicity to various agents [Fatal]
  - Monoclonal gammopathy [Fatal]
  - Musculoskeletal pain [Fatal]
  - Osteoarthritis [Fatal]
  - Spinal disorder [Fatal]
  - Plasma cell myeloma [Fatal]
  - Hypertension [Fatal]
  - Actinic keratosis [Fatal]
  - Anaemia [Fatal]
  - Atrophy [Fatal]
  - Death [Fatal]
  - Sacroiliitis [Fatal]
  - Back pain [Fatal]
  - Palmar erythema [Fatal]
  - Adjustment disorder [Fatal]
  - Bundle branch block left [Fatal]
  - Drug intolerance [Fatal]
